FAERS Safety Report 21503938 (Version 2)
Quarter: 2023Q1

REPORT INFORMATION
  Report Type: Report from Study
  Country: US (occurrence: US)
  Receive Date: 20221025
  Receipt Date: 20230329
  Transmission Date: 20230418
  Serious: No
  Sender: FDA-Public Use
  Company Number: US-ABBVIE-4132118

PATIENT
  Age: 52 Year
  Sex: Female

DRUGS (4)
  1. HUMIRA [Suspect]
     Active Substance: ADALIMUMAB
     Indication: Psoriatic arthropathy
     Route: 058
     Dates: start: 20221011
  2. HUMIRA [Suspect]
     Active Substance: ADALIMUMAB
     Indication: Psoriatic arthropathy
     Route: 058
  3. MODERNA COVID-19 VACCINE [Suspect]
     Active Substance: ELASOMERAN
     Indication: COVID-19 immunisation
     Dosage: ONE IN ONCE?THIRD DOSE
     Route: 030
     Dates: start: 20211127, end: 20211127
  4. JANSSEN COVID-19 VACCINE [Concomitant]
     Active Substance: AD26.COV2.S
     Indication: COVID-19 immunisation
     Dosage: ONE IN ONCE?FIRST DOSE
     Route: 030
     Dates: start: 20210410, end: 20210410

REACTIONS (20)
  - Psoriatic arthropathy [Not Recovered/Not Resolved]
  - Nervousness [Unknown]
  - Migraine [Not Recovered/Not Resolved]
  - Feeling abnormal [Unknown]
  - Fibromyalgia [Unknown]
  - Pain [Unknown]
  - Feeling abnormal [Unknown]
  - Inflammation [Unknown]
  - Psoriasis [Unknown]
  - COVID-19 [Not Recovered/Not Resolved]
  - Ear pruritus [Unknown]
  - Asthenia [Unknown]
  - Eye swelling [Unknown]
  - Ear pain [Unknown]
  - Nasopharyngitis [Unknown]
  - Scab [Unknown]
  - Ear discomfort [Unknown]
  - Swelling face [Unknown]
  - Ear haemorrhage [Unknown]
  - Impaired driving ability [Unknown]

NARRATIVE: CASE EVENT DATE: 20220801
